FAERS Safety Report 23251439 (Version 1)
Quarter: 2023Q4

REPORT INFORMATION
  Report Type: Spontaneous
  Country: US (occurrence: US)
  Receive Date: 20231201
  Receipt Date: 20231201
  Transmission Date: 20240110
  Serious: Yes (Hospitalization)
  Sender: FDA-Public Use
  Company Number: US-Merck Healthcare KGaA-2023489583

PATIENT
  Age: 25 Year
  Sex: Male

DRUGS (3)
  1. LEVOTHYROXINE SODIUM [Suspect]
     Active Substance: LEVOTHYROXINE SODIUM
     Indication: Hypothyroidism
     Dosage: 30-40 TABLETS OF 150 MCG LEVOTHYROXINE
  2. KEPPRA [Suspect]
     Active Substance: LEVETIRACETAM
     Indication: Product used for unknown indication
     Dosage: 25 TABLETS OF 500MG
  3. PROPRANOLOL [Suspect]
     Active Substance: PROPRANOLOL HYDROCHLORIDE
     Indication: Product used for unknown indication
     Dosage: 25 TABLETS OF 10MG

REACTIONS (3)
  - Depressed mood [Unknown]
  - Thyrotoxic crisis [Unknown]
  - Intentional overdose [Unknown]
